FAERS Safety Report 8757237 (Version 1)
Quarter: 2012Q4

REPORT INFORMATION
  Report Type: 
  Country: GB (occurrence: GB)
  Receive Date: 20120828
  Receipt Date: 20120828
  Transmission Date: 20130627
  Serious: Yes (Other)
  Sender: FDA-Public Use
  Company Number: GB-SANOFI-AVENTIS-2012SA060852

PATIENT
  Age: 70 Year
  Sex: Male
  Weight: 90 kg

DRUGS (7)
  1. HYDROXYCHLOROQUINE [Suspect]
     Indication: RHEUMATOID ARTHRITIS
     Dosage: dose 200 units unspecified
     Route: 065
     Dates: start: 20120511, end: 20120712
  2. ASPIRIN [Concomitant]
     Dosage: dose: 75 (unit unspecified)
     Dates: start: 19970102
  3. SIMVASTATIN [Concomitant]
     Dosage: dose: 40  (unit unspecified)
     Dates: start: 20020807
  4. LANSOPRAZOLE [Concomitant]
     Dosage: dose 15 (unit unspecified)
     Dates: start: 20031003
  5. PARACETAMOL [Concomitant]
     Dosage: dose 500 (unit unspecified)
     Dates: start: 20031216
  6. TIMOLOL [Concomitant]
     Dosage: dose:1
cumulative dose: 108
     Dates: start: 20120326
  7. BIMATOPROST [Concomitant]
     Dosage: cumulative dose: 108
     Dates: start: 20120326

REACTIONS (4)
  - Asthma [Recovered/Resolved]
  - Bronchospasm [Recovered/Resolved]
  - Wheezing [Recovered/Resolved]
  - Dyspnoea [Recovered/Resolved]
